FAERS Safety Report 21908898 (Version 1)
Quarter: 2023Q1

REPORT INFORMATION
  Report Type: Spontaneous
  Country: US (occurrence: None)
  Receive Date: 20230119
  Receipt Date: 20230119
  Transmission Date: 20230418
  Serious: Yes (Life-Threatening)
  Sender: FDA-Public Use
  Company Number: None

PATIENT
  Age: 27 Year
  Sex: Male
  Weight: 84.15 kg

DRUGS (2)
  1. YK-11 [Suspect]
     Active Substance: YK-11
     Dates: start: 20221101, end: 20230110
  2. VITAMINS [Concomitant]
     Active Substance: VITAMINS

REACTIONS (4)
  - Back pain [None]
  - Renal failure [None]
  - Dialysis [None]
  - Product use in unapproved indication [None]

NARRATIVE: CASE EVENT DATE: 20230111
